FAERS Safety Report 17081866 (Version 2)
Quarter: 2020Q2

REPORT INFORMATION
  Report Type: Spontaneous
  Country: US (occurrence: US)
  Receive Date: 20191127
  Receipt Date: 20200402
  Transmission Date: 20200713
  Serious: No
  Sender: FDA-Public Use
  Company Number: US-UCBSA-2018056063

PATIENT
  Sex: Female

DRUGS (4)
  1. NEUPRO [Suspect]
     Active Substance: ROTIGOTINE
     Dosage: 1.5 PATCH
  2. NEUPRO [Suspect]
     Active Substance: ROTIGOTINE
     Indication: PRODUCT USED FOR UNKNOWN INDICATION
     Dosage: 1 PATCH
  3. NEUPRO [Suspect]
     Active Substance: ROTIGOTINE
     Dosage: 3 PATCH
  4. NEUPRO [Suspect]
     Active Substance: ROTIGOTINE
     Dosage: 2 PATCH

REACTIONS (1)
  - No adverse event [Unknown]
